FAERS Safety Report 16757906 (Version 1)
Quarter: 2019Q3

REPORT INFORMATION
  Report Type: Report from Study
  Country: CN (occurrence: CN)
  Receive Date: 20190830
  Receipt Date: 20190830
  Transmission Date: 20191005
  Serious: Yes (Death)
  Sender: FDA-Public Use
  Company Number: CN-ROCHE-2389819

PATIENT
  Age: 38 Year
  Sex: Male
  Weight: 100 kg

DRUGS (1)
  1. AVASTIN [Suspect]
     Active Substance: BEVACIZUMAB
     Indication: COLORECTAL CANCER
     Route: 041
     Dates: start: 20170930

REACTIONS (2)
  - Organ failure [Fatal]
  - Oedema peripheral [Unknown]
